FAERS Safety Report 4979947-3 (Version None)
Quarter: 2006Q2

REPORT INFORMATION
  Report Type: 
  Country: None (occurrence: None)
  Receive Date: 20060421
  Receipt Date: 20060309
  Transmission Date: 20061013
  Serious: Yes (Death)
  Sender: FDA-Public Use
  Company Number: US-MERCK-0603USA01712

PATIENT
  Age: 47 Year
  Sex: Male
  Weight: 89 kg

DRUGS (17)
  1. MINOCYCLINE HCL [Concomitant]
     Route: 065
  2. REGLAN [Concomitant]
     Route: 065
  3. KEFLEX [Concomitant]
     Route: 065
  4. VIOXX [Suspect]
     Indication: ARTHRITIS
     Route: 048
     Dates: start: 20000805
  5. VIOXX [Suspect]
     Route: 048
     Dates: start: 20000805
  6. RITALIN [Concomitant]
     Route: 065
  7. HYDROCHLOROTHIAZIDE [Concomitant]
     Route: 065
  8. NEURONTIN [Concomitant]
     Route: 065
  9. LUDIOMIL [Concomitant]
     Route: 065
  10. IBUPROFEN [Concomitant]
     Route: 065
  11. TYLENOL (CAPLET) [Concomitant]
     Route: 065
  12. KUTRASE CAPSULES [Concomitant]
     Route: 065
  13. LEVSIN SL [Concomitant]
     Route: 065
  14. CARDIZEM [Concomitant]
     Route: 065
  15. PRILOSEC [Concomitant]
     Route: 065
  16. PERI-COLACE [Concomitant]
     Route: 065
  17. DARVOCET [Concomitant]
     Route: 065

REACTIONS (6)
  - ACUTE MYOCARDIAL INFARCTION [None]
  - CARDIO-RESPIRATORY ARREST [None]
  - HYPERTENSION [None]
  - HYPOTENSION [None]
  - LOSS OF CONSCIOUSNESS [None]
  - TACHYCARDIA [None]
